FAERS Safety Report 6759793-0 (Version None)
Quarter: 2010Q2

REPORT INFORMATION
  Report Type: 
  Country: None (occurrence: None)
  Receive Date: 20100608
  Receipt Date: 20100602
  Transmission Date: 20101027
  Serious: Yes (Hospitalization, Other)
  Sender: FDA-Public Use
  Company Number: US-JNJFOC-20100601183

PATIENT
  Sex: Female
  Weight: 48.08 kg

DRUGS (8)
  1. SANDOZ FENTANYL TRANSDERMAL SYSTEM [Suspect]
     Indication: BACK PAIN
     Dosage: NDC# UNKNOWN
     Route: 062
  2. SANDOZ FENTANYL TRANSDERMAL SYSTEM [Suspect]
     Dosage: NDC# 0781-7241-55
     Route: 062
  3. PERCOCET [Concomitant]
     Indication: BREAKTHROUGH PAIN
     Dosage: 5/325 MG AS NEEDED
     Route: 048
  4. ALDACTONE [Concomitant]
     Indication: LIVER DISORDER
     Route: 048
  5. DETROL LA [Concomitant]
     Indication: INCONTINENCE
     Route: 048
  6. URSO 250 [Concomitant]
     Indication: LIVER DISORDER
     Route: 048
  7. FLOMAX [Concomitant]
     Indication: BLADDER DISORDER
     Route: 048
  8. CALCIUM CARBONATE [Concomitant]
     Indication: MINERAL SUPPLEMENTATION
     Route: 048

REACTIONS (8)
  - BACK PAIN [None]
  - BODY HEIGHT DECREASED [None]
  - CHRONIC OBSTRUCTIVE PULMONARY DISEASE [None]
  - INADEQUATE ANALGESIA [None]
  - NEPHROPATHY [None]
  - PNEUMONIA [None]
  - SPINAL COMPRESSION FRACTURE [None]
  - WITHDRAWAL SYNDROME [None]
